FAERS Safety Report 12707535 (Version 3)
Quarter: 2018Q2

REPORT INFORMATION
  Report Type: Report from Study
  Country: JP (occurrence: JP)
  Receive Date: 20160901
  Receipt Date: 20180418
  Transmission Date: 20180711
  Serious: Yes (Hospitalization)
  Sender: FDA-Public Use
  Company Number: JP-TEVA-689285ISR

PATIENT
  Age: 71 Year
  Sex: Male
  Weight: 62.5 kg

DRUGS (16)
  1. SAMSCA [Concomitant]
     Active Substance: TOLVAPTAN
     Indication: CARDIAC AMYLOIDOSIS
     Dates: start: 20141202
  2. GASLON [Concomitant]
     Active Substance: IRSOGLADINE MALEATE
     Indication: PROPHYLAXIS
     Dates: start: 20141202
  3. FEBURIC [Concomitant]
     Active Substance: FEBUXOSTAT
     Indication: HYPERCALCAEMIA
     Dates: start: 20160705
  4. DIART [Concomitant]
     Active Substance: AZOSEMIDE
     Indication: CARDIAC AMYLOIDOSIS
     Dates: start: 20141202
  5. MOHRUS L [Concomitant]
     Active Substance: KETOPROFEN
     Indication: LUMBAR SPINAL STENOSIS
     Dates: start: 20150205
  6. TAFAMIDIS MEGLUMINE;PLACEBO (CODE NOT BROKEN) [Suspect]
     Active Substance: TAFAMIDIS MEGLUMINE
     Indication: CARDIOMYOPATHY
     Route: 048
     Dates: start: 20150121, end: 20170727
  7. VITAMINS NOS [Concomitant]
     Active Substance: VITAMINS
     Indication: LUMBAR SPINAL STENOSIS
     Dates: start: 20150811
  8. NEXIUM [Concomitant]
     Active Substance: ESOMEPRAZOLE MAGNESIUM
     Indication: GASTRITIS PROPHYLAXIS
     Dates: start: 20160716
  9. URIEF [Concomitant]
     Active Substance: SILODOSIN
     Indication: BENIGN PROSTATIC HYPERPLASIA
     Dates: start: 20141202
  10. LIPITOR [Concomitant]
     Active Substance: ATORVASTATIN CALCIUM
     Indication: DYSLIPIDAEMIA
     Dates: start: 20141202
  11. LYRICA [Concomitant]
     Active Substance: PREGABALIN
     Dates: start: 20141202
  12. KALIMATE ORAL SOLUTION 20% [Concomitant]
     Indication: HYPERCALCAEMIA
     Dates: start: 20160419
  13. WARFARIN [Suspect]
     Active Substance: WARFARIN
     Indication: ATRIAL FLUTTER
     Dosage: 4.5 MILLIGRAM DAILY;
     Route: 048
     Dates: start: 20160717
  14. ZETIA [Concomitant]
     Active Substance: EZETIMIBE
     Indication: DYSLIPIDAEMIA
     Dates: start: 20141202
  15. AVOLVE [Concomitant]
     Active Substance: DUTASTERIDE
     Indication: BENIGN PROSTATIC HYPERPLASIA
     Dates: start: 20160727
  16. PLAVIX [Suspect]
     Active Substance: CLOPIDOGREL BISULFATE
     Indication: CORONARY ARTERY DISEASE
     Dosage: 75 MILLIGRAM DAILY;
     Route: 048
     Dates: start: 20150709

REACTIONS (1)
  - Urinary bladder haemorrhage [Recovered/Resolved]

NARRATIVE: CASE EVENT DATE: 20160802
